FAERS Safety Report 6555422-X (Version None)
Quarter: 2010Q1

REPORT INFORMATION
  Report Type: 
  Country: None (occurrence: None)
  Receive Date: 20100128
  Receipt Date: 20090922
  Transmission Date: 20100710
  Serious: No
  Sender: FDA-Public Use
  Company Number: A0816585A

PATIENT
  Age: 84 Year
  Sex: Male
  Weight: 85.9 kg

DRUGS (1)
  1. WELLBUTRIN XL [Suspect]
     Indication: DEPRESSION
     Dosage: 150MG TWICE PER DAY
     Route: 065
     Dates: start: 20090727, end: 20090818

REACTIONS (3)
  - BACK PAIN [None]
  - MUSCULOSKELETAL PAIN [None]
  - PAIN IN EXTREMITY [None]
